FAERS Safety Report 20153319 (Version 1)
Quarter: 2021Q4

REPORT INFORMATION
  Report Type: Spontaneous
  Country: NL (occurrence: NL)
  Receive Date: 20211206
  Receipt Date: 20211206
  Transmission Date: 20220303
  Serious: Yes (Hospitalization, Other)
  Sender: FDA-Public Use
  Company Number: NL-OTSUKA-2021_040910AA

PATIENT
  Sex: Male

DRUGS (11)
  1. DECITABINE [Suspect]
     Active Substance: DECITABINE
     Indication: Product used for unknown indication
     Dosage: UNK
     Route: 065
     Dates: start: 2020, end: 2020
  2. DECITABINE [Suspect]
     Active Substance: DECITABINE
     Dosage: UNK
     Route: 065
     Dates: start: 2020, end: 2020
  3. DECITABINE [Suspect]
     Active Substance: DECITABINE
     Dosage: AY 1 TO 5 OF RAMP UP (20 MG/M2)
     Route: 065
     Dates: start: 20201216
  4. DECITABINE [Suspect]
     Active Substance: DECITABINE
     Dosage: UNK
     Route: 065
     Dates: start: 20200525, end: 2020
  5. VENETOCLAX [Suspect]
     Active Substance: VENETOCLAX
     Indication: Acute myeloid leukaemia
     Dosage: UNK (70 MG)
     Route: 048
     Dates: start: 20201216, end: 20210426
  6. VORICONAZOLE [Suspect]
     Active Substance: VORICONAZOLE
     Indication: Product used for unknown indication
     Dosage: UNK
     Route: 065
  7. VALACYCLOVIR HYDROCHLORIDE [Concomitant]
     Active Substance: VALACYCLOVIR HYDROCHLORIDE
     Indication: Pneumocystis jirovecii infection
     Dosage: 1000 MG,1 IN 1D
     Route: 048
     Dates: start: 20200820
  8. POSACONAZOLE [Concomitant]
     Active Substance: POSACONAZOLE
     Indication: Antifungal prophylaxis
     Dosage: 300 MG,1 IN 1 D
     Route: 048
     Dates: start: 20201213, end: 20210615
  9. COTRIMOXAZOLE [Concomitant]
     Active Substance: SULFAMETHOXAZOLE\TRIMETHOPRIM
     Indication: Pneumocystis jirovecii infection
     Dosage: 480 MG,1 IN 1 D
     Route: 048
     Dates: start: 20200820
  10. GEMTUZUMAB OZOGAMICIN [Concomitant]
     Active Substance: GEMTUZUMAB OZOGAMICIN
     Indication: Product used for unknown indication
     Dosage: UNK
     Route: 065
  11. CARBASPIRIN CALCIUM [Concomitant]
     Active Substance: CARBASPIRIN CALCIUM
     Indication: Cardiovascular disorder
     Dosage: 100 MG,1 IN 1 D
     Route: 048
     Dates: start: 20200820, end: 20210922

REACTIONS (6)
  - Donor leukocyte infusion [Unknown]
  - Acute graft versus host disease [Recovered/Resolved]
  - Pancytopenia [Recovering/Resolving]
  - Pyrexia [Unknown]
  - Thrombocytopenia [Recovering/Resolving]
  - Off label use [Unknown]

NARRATIVE: CASE EVENT DATE: 20201216
